FAERS Safety Report 17856237 (Version 2)
Quarter: 2020Q3

REPORT INFORMATION
  Report Type: Spontaneous
  Country: FR (occurrence: FR)
  Receive Date: 20200603
  Receipt Date: 20200709
  Transmission Date: 20201103
  Serious: Yes (Hospitalization)
  Sender: FDA-Public Use
  Company Number: FR-MYLANLABS-2020M1053876

PATIENT
  Age: 64 Year
  Sex: Male
  Weight: 75 kg

DRUGS (13)
  1. VFEND [Suspect]
     Active Substance: VORICONAZOLE
     Indication: BRONCHOPULMONARY ASPERGILLOSIS
     Dosage: 400 MILLIGRAM, QD
     Route: 048
     Dates: start: 20200403, end: 20200411
  2. ZELITREX [Concomitant]
     Active Substance: VALACYCLOVIR HYDROCHLORIDE
     Dosage: 500 MILLIGRAM, QD
     Route: 048
     Dates: start: 20200313
  3. ASPIRINE PROTECT [Concomitant]
     Active Substance: ASPIRIN
     Route: 048
     Dates: start: 2014
  4. NEOFORDEX [Concomitant]
     Active Substance: DEXAMETHASONE ACETATE
     Indication: PLASMA CELL MYELOMA
  5. RAMIPRIL. [Suspect]
     Active Substance: RAMIPRIL
     Indication: HYPERTENSION
     Dosage: 2.5 MILLIGRAM, QD
     Route: 048
     Dates: start: 20200324, end: 20200411
  6. IMNOVID [Suspect]
     Active Substance: POMALIDOMIDE
     Indication: PLASMA CELL MYELOMA
     Dosage: 4MG/J DE J1 ? J21, PUIS STOP 7J AVANT DE REPRENDRE ? J28
     Route: 048
     Dates: start: 20200407, end: 20200411
  7. SKENAN [Concomitant]
     Active Substance: MORPHINE SULFATE
     Dosage: 60 MILLIGRAM, QD
     Route: 048
     Dates: start: 20200306, end: 20200411
  8. ACTISKENAN [Concomitant]
     Active Substance: MORPHINE SULFATE
     Dosage: 60 MILLIGRAM, QD
     Route: 048
     Dates: start: 2014, end: 20200411
  9. LYRICA [Concomitant]
     Active Substance: PREGABALIN
     Dosage: 150 MILLIGRAM, QD
     Route: 048
     Dates: start: 2014
  10. BACTRIM [Concomitant]
     Active Substance: SULFAMETHOXAZOLE\TRIMETHOPRIM
     Dosage: 3 DOSAGE FORM, QW
     Route: 048
     Dates: start: 2014
  11. ZOMETA [Concomitant]
     Active Substance: ZOLEDRONIC ACID
     Dosage: 4 MILLIGRAM, MONTHLY
     Route: 041
     Dates: start: 20200312
  12. LASILIX                            /00032601/ [Concomitant]
     Active Substance: FUROSEMIDE
     Indication: PRODUCT USED FOR UNKNOWN INDICATION
     Dosage: 60 MILLIGRAM, QD
     Route: 048
     Dates: start: 20200324
  13. NEOFORDEX [Concomitant]
     Active Substance: DEXAMETHASONE ACETATE
     Indication: CHEST PAIN
     Dosage: 40MG/SEMAINE
     Route: 048
     Dates: start: 20200330, end: 20200331

REACTIONS (3)
  - Sepsis [Recovering/Resolving]
  - Acute kidney injury [Recovered/Resolved]
  - Hallucination [Recovered/Resolved]

NARRATIVE: CASE EVENT DATE: 20200409
